FAERS Safety Report 12675811 (Version 1)
Quarter: 2016Q3

REPORT INFORMATION
  Report Type: Spontaneous
  Country: US (occurrence: US)
  Receive Date: 20160823
  Receipt Date: 20160823
  Transmission Date: 20161109
  Serious: No
  Sender: FDA-Public Use
  Company Number: US-JAZZ-2016-US-006511

PATIENT
  Sex: Female

DRUGS (32)
  1. XYREM [Suspect]
     Active Substance: SODIUM OXYBATE
     Indication: NARCOLEPSY
     Dosage: 4.5 G, BID
     Route: 048
     Dates: start: 201502
  2. AMLACTIN [Concomitant]
     Active Substance: AMMONIUM LACTATE
  3. HEPARIN FLUSH [Concomitant]
     Active Substance: HEPARIN SODIUM
  4. ASPIRIN. [Concomitant]
     Active Substance: ASPIRIN
  5. DIPHENHYDRAMINE. [Concomitant]
     Active Substance: DIPHENHYDRAMINE
  6. POTASSIUM CL ER [Concomitant]
     Active Substance: POTASSIUM CHLORIDE
  7. ALBENZA [Concomitant]
     Active Substance: ALBENDAZOLE
  8. VISTARIL [Concomitant]
     Active Substance: HYDROXYZINE PAMOATE
  9. ACETAMINOPHEN. [Concomitant]
     Active Substance: ACETAMINOPHEN
  10. OXYGEN. [Concomitant]
     Active Substance: OXYGEN
  11. SPIRONOLACTONE. [Concomitant]
     Active Substance: SPIRONOLACTONE
  12. HYDROXYZINE HCL [Concomitant]
     Active Substance: HYDROXYZINE HYDROCHLORIDE
  13. HYDROXYZINE [Concomitant]
     Active Substance: HYDROXYZINE\HYDROXYZINE HYDROCHLORIDE
  14. PROMETHAZINE [Concomitant]
     Active Substance: PROMETHAZINE\PROMETHAZINE HYDROCHLORIDE
  15. LASIX [Concomitant]
     Active Substance: FUROSEMIDE
  16. HYDROMORPHONE [Concomitant]
     Active Substance: HYDROMORPHONE
  17. XYREM [Suspect]
     Active Substance: SODIUM OXYBATE
     Indication: CATAPLEXY
  18. MEBENDAZOLE. [Concomitant]
     Active Substance: MEBENDAZOLE
  19. COUMADIN [Concomitant]
     Active Substance: WARFARIN SODIUM
  20. INVANZ [Concomitant]
     Active Substance: ERTAPENEM SODIUM
  21. RESTASIS [Concomitant]
     Active Substance: CYCLOSPORINE
  22. SYNTHROID [Concomitant]
     Active Substance: LEVOTHYROXINE SODIUM
  23. BENADRYL [Concomitant]
     Active Substance: DIPHENHYDRAMINE HYDROCHLORIDE
  24. GUAIFENESIN ER [Concomitant]
     Active Substance: GUAIFENESIN
  25. PRAMIPEXOLE. [Concomitant]
     Active Substance: PRAMIPEXOLE
  26. TERBINAFINE HCL [Concomitant]
     Active Substance: TERBINAFINE HYDROCHLORIDE
  27. PROTONIX DR [Concomitant]
  28. SIMVASTATIN. [Concomitant]
     Active Substance: SIMVASTATIN
  29. PROPAFENONE HCL [Concomitant]
     Active Substance: PROPAFENONE HYDROCHLORIDE
  30. PREDNISONE. [Concomitant]
     Active Substance: PREDNISONE
  31. FUROSEMIDE. [Concomitant]
     Active Substance: FUROSEMIDE
  32. NARDIL [Concomitant]
     Active Substance: PHENELZINE SULFATE

REACTIONS (1)
  - Tendon injury [Unknown]
